FAERS Safety Report 19484091 (Version 1)
Quarter: 2021Q3

REPORT INFORMATION
  Report Type: Spontaneous
  Country: DE (occurrence: DE)
  Receive Date: 20210701
  Receipt Date: 20210701
  Transmission Date: 20211014
  Serious: Yes (Hospitalization)
  Sender: FDA-Public Use
  Company Number: NVSC2021DE142221

PATIENT
  Age: 56 Year
  Sex: Female

DRUGS (1)
  1. RISPERIDONE. [Suspect]
     Active Substance: RISPERIDONE
     Indication: PRODUCT USED FOR UNKNOWN INDICATION
     Dosage: UNK(NK MG)
     Route: 065

REACTIONS (2)
  - Product administration error [Unknown]
  - Schizophrenia [Unknown]

NARRATIVE: CASE EVENT DATE: 20200920
